FAERS Safety Report 8218571-6 (Version None)
Quarter: 2012Q1

REPORT INFORMATION
  Report Type: 
  Country: None (occurrence: None)
  Receive Date: 20120319
  Receipt Date: 20120316
  Transmission Date: 20120608
  Serious: Yes (Life-Threatening, Hospitalization, Other)
  Sender: FDA-Public Use
  Company Number: JP-GENZYME-THYM-1002660

PATIENT
  Sex: Female
  Weight: 49 kg

DRUGS (16)
  1. ACYCLOVIR [Concomitant]
     Indication: ANTIVIRAL PROPHYLAXIS
     Dosage: UNK
     Route: 065
     Dates: start: 20101122, end: 20101201
  2. LANSOPRAZOLE [Concomitant]
     Indication: PROPHYLAXIS AGAINST GASTROINTESTINAL ULCER
     Dosage: UNK
     Route: 065
     Dates: start: 20101112, end: 20101201
  3. LEVOFLOXACIN [Concomitant]
     Indication: ANTIBIOTIC PROPHYLAXIS
     Dosage: UNK
     Route: 065
     Dates: start: 20101112, end: 20101122
  4. SULFAMETHOPRIM [Concomitant]
     Indication: ANTIFUNGAL PROPHYLAXIS
     Dosage: UNK
     Route: 065
     Dates: start: 20101112, end: 20101125
  5. FLUDARA [Suspect]
     Indication: EPSTEIN-BARR VIRUS INFECTION
     Dosage: 36 MG, QD
     Route: 042
     Dates: start: 20101118, end: 20101122
  6. AZASETRON HYDROCHLORIDE [Concomitant]
     Indication: PROPHYLAXIS OF NAUSEA AND VOMITING
     Dosage: UNK
     Route: 065
     Dates: start: 20101118, end: 20101124
  7. METHYLPREDNISOLONE SODIUM SUCCINATE [Concomitant]
     Indication: PREMEDICATION
     Dosage: UNK
     Route: 065
     Dates: start: 20101123, end: 20101124
  8. METHOTREXATE [Concomitant]
     Indication: PROPHYLAXIS AGAINST GRAFT VERSUS HOST DISEASE
     Dosage: UNK
     Route: 065
     Dates: start: 20101127, end: 20101202
  9. FLUCONAZOLE [Concomitant]
     Indication: ANTIFUNGAL PROPHYLAXIS
     Dosage: UNK
     Route: 065
     Dates: start: 20101112, end: 20101201
  10. MELPHALAN HYDROCHLORIDE [Concomitant]
     Indication: EPSTEIN-BARR VIRUS INFECTION
     Dosage: UNK
     Route: 065
     Dates: start: 20101123, end: 20101124
  11. OMEPRAZOLE [Concomitant]
     Indication: PROPHYLAXIS AGAINST GASTROINTESTINAL ULCER
     Dosage: UNK
     Route: 065
     Dates: start: 20101202, end: 20101227
  12. THYMOGLOBULIN [Suspect]
     Indication: BONE MARROW CONDITIONING REGIMEN
     Dosage: 62.5 MG, QD
     Route: 042
     Dates: start: 20101123, end: 20101124
  13. TACROLIMUS [Concomitant]
     Indication: PROPHYLAXIS AGAINST GRAFT VERSUS HOST DISEASE
     Dosage: UNK
     Route: 065
     Dates: start: 20101125
  14. MICAFUNGIN SODIUM [Concomitant]
     Indication: ANTIFUNGAL PROPHYLAXIS
     Dosage: UNK
     Route: 065
     Dates: start: 20101202, end: 20110105
  15. URSODIOL [Concomitant]
     Indication: THROMBOSIS PROPHYLAXIS
     Dosage: UNK
     Route: 065
     Dates: start: 20101112, end: 20101201
  16. ACYCLOVIR [Concomitant]
     Dosage: UNK
     Route: 065
     Dates: start: 20101202, end: 20110103

REACTIONS (5)
  - ACUTE GRAFT VERSUS HOST DISEASE IN SKIN [None]
  - NEUTROPHIL COUNT DECREASED [None]
  - FEBRILE NEUTROPENIA [None]
  - POST TRANSPLANT LYMPHOPROLIFERATIVE DISORDER [None]
  - INSOMNIA [None]
